FAERS Safety Report 21556564 (Version 1)
Quarter: 2022Q4

REPORT INFORMATION
  Report Type: Spontaneous
  Country: US (occurrence: US)
  Receive Date: 20221104
  Receipt Date: 20221104
  Transmission Date: 20230112
  Serious: No
  Sender: FDA-Public Use
  Company Number: US-BAYER-2022A147404

PATIENT
  Age: 81 Year
  Sex: Female
  Weight: 60.8 kg

DRUGS (21)
  1. CIPRO [Suspect]
     Active Substance: CIPROFLOXACIN HYDROCHLORIDE
  2. JAKAFI [Suspect]
     Active Substance: RUXOLITINIB
     Indication: Myelofibrosis
     Dosage: 15 MILLIGRAM, Q12H
     Route: 048
     Dates: start: 20140904
  3. JAKAFI [Suspect]
     Active Substance: RUXOLITINIB
     Indication: Myelofibrosis
     Dosage: 15 MILLIGRAM, QD;
     Route: 048
     Dates: start: 20170419
  4. JAKAFI [Suspect]
     Active Substance: RUXOLITINIB
     Indication: Myelofibrosis
     Dosage: 15 MILLIGRAM, QD;
     Route: 048
     Dates: start: 20170419
  5. JAKAFI [Suspect]
     Active Substance: RUXOLITINIB
     Indication: Myelofibrosis
     Dosage: 15 MILLIGRAM, QD;
     Route: 048
     Dates: start: 201209
  6. JAKAFI [Suspect]
     Active Substance: RUXOLITINIB
     Indication: Myelofibrosis
     Dosage: 15 MILLIGRAM, QD;
     Dates: start: 20170420
  7. JAKAFI [Suspect]
     Active Substance: RUXOLITINIB
     Indication: Myelofibrosis
     Dosage: 15 MILLIGRAM, QD;
     Dates: start: 201704
  8. JAKAFI [Suspect]
     Active Substance: RUXOLITINIB
     Indication: Myelofibrosis
     Dosage: 15 MILLIGRAM, QD;
     Route: 048
     Dates: start: 20170419
  9. COVID-19 VACCINE NOS [Suspect]
     Active Substance: COVID-19 VACCINE NOS
     Indication: Product used for unknown indication
     Dosage: UNK
  10. FISH OIL [Concomitant]
     Active Substance: FISH OIL
  11. VITAMINS NOS [Concomitant]
     Active Substance: VITAMINS
  12. ASPIRIN [Concomitant]
     Active Substance: ASPIRIN
     Route: 048
  13. LEVOTHYROXINE [Concomitant]
     Active Substance: LEVOTHYROXINE
     Route: 048
  14. XANAX [Concomitant]
     Active Substance: ALPRAZOLAM
  15. OMEPRAZOLE [Concomitant]
     Active Substance: OMEPRAZOLE
  16. COLACE [Concomitant]
     Active Substance: DOCUSATE SODIUM
  17. CALCIUM [Concomitant]
     Active Substance: CALCIUM
  18. CARVEDILOL [Concomitant]
     Active Substance: CARVEDILOL
  19. MIRALAX [Concomitant]
     Active Substance: POLYETHYLENE GLYCOL 3350
  20. PROBIOTIC BLEND [Concomitant]
  21. SIMVASTATIN [Concomitant]
     Active Substance: SIMVASTATIN

REACTIONS (23)
  - Product physical issue [None]
  - Platelet count increased [None]
  - Lymphocyte count decreased [None]
  - Immature granulocyte count increased [None]
  - Blood glucose increased [None]
  - Glomerular filtration rate decreased [None]
  - Blood sodium decreased [None]
  - Arthralgia [None]
  - Mean cell volume increased [None]
  - Red cell distribution width increased [None]
  - Monocyte count increased [None]
  - Glycosylated haemoglobin increased [None]
  - Anion gap increased [None]
  - Blood folate increased [None]
  - Pyrexia [Recovered/Resolved]
  - Tendon pain [None]
  - Urinary tract infection [None]
  - Cystitis [None]
  - Red blood cell count decreased [None]
  - Haemoglobin decreased [None]
  - Haematocrit decreased [None]
  - Dyspnoea [None]
  - Constipation [None]

NARRATIVE: CASE EVENT DATE: 20220801
